FAERS Safety Report 6412033-4 (Version None)
Quarter: 2009Q4

REPORT INFORMATION
  Report Type: 
  Country: None (occurrence: None)
  Receive Date: 20091023
  Receipt Date: 20091016
  Transmission Date: 20100525
  Serious: Yes (Other)
  Sender: FDA-Public Use
  Company Number: US-PFIZER INC-2006086694

PATIENT
  Sex: Female

DRUGS (10)
  1. PROVERA [Suspect]
     Indication: HORMONE REPLACEMENT THERAPY
     Dosage: 2.5 MG, UNK
     Route: 048
     Dates: start: 19930901, end: 19970501
  2. PROVERA [Suspect]
     Indication: MENOPAUSAL SYMPTOMS
  3. MEDROXYPROGESTERONE ACETATE TABLET [Suspect]
     Indication: HORMONE REPLACEMENT THERAPY
     Route: 048
  4. PREMARIN [Suspect]
     Indication: HORMONE REPLACEMENT THERAPY
     Dosage: 0.625 MG, UNK
     Dates: start: 19930901, end: 19970501
  5. PREMARIN [Suspect]
     Indication: MENOPAUSAL SYMPTOMS
  6. PREMPRO [Suspect]
     Indication: HORMONE REPLACEMENT THERAPY
     Dosage: UNK
     Dates: start: 19970501, end: 20000801
  7. PREMPRO [Suspect]
     Indication: MENOPAUSAL SYMPTOMS
  8. CYCRIN [Suspect]
     Indication: HORMONE REPLACEMENT THERAPY
     Dosage: 2.5 MG, UNK
     Dates: start: 19930901, end: 19970501
  9. LODINE [Concomitant]
     Indication: ARTHRITIS
     Dosage: 400 MG, UNK
     Dates: start: 19900101
  10. SINGULAIR ^DIECKMANN^ [Concomitant]
     Indication: ASTHMA
     Dosage: UNK
     Dates: start: 19900101

REACTIONS (1)
  - BREAST CANCER FEMALE [None]
